FAERS Safety Report 17212919 (Version 1)
Quarter: 2019Q4

REPORT INFORMATION
  Report Type: Spontaneous
  Country: US (occurrence: US)
  Receive Date: 20191230
  Receipt Date: 20191230
  Transmission Date: 20200122
  Serious: Yes (Life-Threatening, Hospitalization, Other)
  Sender: FDA-Public Use
  Company Number: US-GLAXOSMITHKLINE-US2019GSK231811

PATIENT
  Sex: Female

DRUGS (7)
  1. LAMICTAL [Suspect]
     Active Substance: LAMOTRIGINE
     Indication: MAJOR DEPRESSION
     Dosage: 25 MG, QD(FOR 14 DAYS THEN TAKE 2 TAB LETS ONCE DAILY THEREAFTER)
     Route: 048
  2. CHOLECALCIFEROL [Concomitant]
     Active Substance: CHOLECALCIFEROL
     Indication: PRODUCT USED FOR UNKNOWN INDICATION
     Dosage: UNK
  3. DULOXETINE. [Concomitant]
     Active Substance: DULOXETINE
     Indication: PRODUCT USED FOR UNKNOWN INDICATION
     Dosage: UNK
  4. PRAZOSIN. [Concomitant]
     Active Substance: PRAZOSIN
     Indication: PRODUCT USED FOR UNKNOWN INDICATION
     Dosage: UNK
  5. AMLODIPINE [Concomitant]
     Active Substance: AMLODIPINE BESYLATE
     Indication: PRODUCT USED FOR UNKNOWN INDICATION
     Dosage: UNK
  6. LAMICTAL [Suspect]
     Active Substance: LAMOTRIGINE
     Dosage: 25 MG, QD(FOR 14 DAYS THEN TAKE 2 TAB LETS ONCE DAILY THEREAFTER)
     Route: 048
  7. CLONAZEPAM. [Concomitant]
     Active Substance: CLONAZEPAM
     Indication: PRODUCT USED FOR UNKNOWN INDICATION
     Dosage: UNK

REACTIONS (46)
  - Stress cardiomyopathy [Recovered/Resolved]
  - Hepatomegaly [Recovering/Resolving]
  - Respiratory failure [Recovering/Resolving]
  - Interleukin-2 receptor increased [Recovered/Resolved]
  - Thrombocytopenia [Recovering/Resolving]
  - Rash maculo-papular [Recovering/Resolving]
  - Viral infection [Recovering/Resolving]
  - Hyperferritinaemia [Recovered/Resolved]
  - Ventricular tachycardia [Unknown]
  - Anaemia [Recovering/Resolving]
  - Blood triglycerides increased [Recovering/Resolving]
  - Acute kidney injury [Recovered/Resolved]
  - Musculoskeletal stiffness [Recovering/Resolving]
  - Thrombocytopenia [Unknown]
  - Pyrexia [Recovering/Resolving]
  - Tachycardia [Recovering/Resolving]
  - Ventricular fibrillation [Recovered/Resolved]
  - Cardiac arrest [Recovered/Resolved]
  - Influenza like illness [Recovering/Resolving]
  - Transaminases increased [Recovered/Resolved]
  - Coagulopathy [Recovering/Resolving]
  - Renal failure [Recovering/Resolving]
  - Hyperferritinaemia [Unknown]
  - Renal impairment [Unknown]
  - Fibrin D dimer increased [Recovered/Resolved]
  - Neutrophil toxic granulation present [Recovering/Resolving]
  - Blood fibrinogen decreased [Recovered/Resolved]
  - Epstein-Barr virus infection [Unknown]
  - Ejection fraction decreased [Recovering/Resolving]
  - Hepatic failure [Recovering/Resolving]
  - Cytopenia [Recovering/Resolving]
  - Rash erythematous [Unknown]
  - Poikilocytosis [Recovering/Resolving]
  - International normalised ratio increased [Recovering/Resolving]
  - Liver function test increased [Recovered/Resolved]
  - Viraemia [Unknown]
  - Inflammation [Recovering/Resolving]
  - Drug hypersensitivity [Unknown]
  - Systemic inflammatory response syndrome [Unknown]
  - Haemophagocytic lymphohistiocytosis [Recovering/Resolving]
  - Inflammatory marker increased [Recovered/Resolved]
  - Sepsis [Recovering/Resolving]
  - Anisocytosis [Recovering/Resolving]
  - Blood lactate dehydrogenase increased [Recovered/Resolved]
  - Multiple organ dysfunction syndrome [Recovered/Resolved]
  - Coma [Unknown]
